FAERS Safety Report 12270565 (Version 1)
Quarter: 2016Q2

REPORT INFORMATION
  Report Type: Report from Study
  Country: IL (occurrence: IL)
  Receive Date: 20160415
  Receipt Date: 20160415
  Transmission Date: 20160815
  Serious: Yes (Hospitalization)
  Sender: FDA-Public Use
  Company Number: PHHY2016IL048565

PATIENT
  Sex: Male

DRUGS (1)
  1. SANDOSTATIN LAR DEPOT [Suspect]
     Active Substance: OCTREOTIDE ACETATE
     Indication: ACROMEGALY
     Dosage: 20 MG, QMO (Q4W)
     Route: 030
     Dates: start: 20160316

REACTIONS (5)
  - Cough [Recovering/Resolving]
  - Influenza [Recovering/Resolving]
  - Heart rate irregular [Recovered/Resolved]
  - Asthenia [Recovering/Resolving]
  - Heart rate decreased [Recovered/Resolved]
